FAERS Safety Report 6676693-5 (Version None)
Quarter: 2010Q2

REPORT INFORMATION
  Report Type: 
  Country: None (occurrence: None)
  Receive Date: 20100412
  Receipt Date: 20100401
  Transmission Date: 20101027
  Serious: Yes (Hospitalization)
  Sender: FDA-Public Use
  Company Number: DE-JNJFOC-20100207202

PATIENT
  Sex: Male

DRUGS (5)
  1. REMICADE [Suspect]
     Indication: COLITIS ULCERATIVE
     Dosage: TREATED WITH 2 INFUSIONS
     Route: 042
  2. AZATHIOPRINE [Suspect]
     Indication: COLITIS ULCERATIVE
  3. GLUCOCORTICOIDS [Concomitant]
  4. CLAVERSAL [Concomitant]
     Indication: COLITIS ULCERATIVE
  5. PREDNISONE TAB [Concomitant]
     Indication: COLITIS ULCERATIVE

REACTIONS (3)
  - ENCEPHALITIS [None]
  - LEUKOPENIA [None]
  - TOXIC ENCEPHALOPATHY [None]
